FAERS Safety Report 5032420-9 (Version None)
Quarter: 2006Q2

REPORT INFORMATION
  Report Type: 
  Country: None (occurrence: None)
  Receive Date: 20060622
  Receipt Date: 20060615
  Transmission Date: 20061013
  Serious: Yes (Other)
  Sender: FDA-Public Use
  Company Number: US-SP-2006-01513

PATIENT
  Age: 17 Year
  Sex: Female

DRUGS (4)
  1. TUBERSOL [Suspect]
     Indication: TUBERCULIN TEST
     Route: 058
     Dates: start: 20060424
  2. TUBERSOL [Suspect]
     Route: 058
     Dates: start: 20060424
  3. MENACTRA [Suspect]
     Indication: IMMUNISATION
     Route: 058
     Dates: start: 20060418
  4. MENACTRA [Suspect]
     Route: 058
     Dates: start: 20060418

REACTIONS (2)
  - INCORRECT ROUTE OF DRUG ADMINISTRATION [None]
  - MASS [None]
